FAERS Safety Report 12759468 (Version 1)
Quarter: 2016Q3

REPORT INFORMATION
  Report Type: Spontaneous
  Country: US (occurrence: US)
  Receive Date: 20160919
  Receipt Date: 20160919
  Transmission Date: 20161109
  Serious: Yes (Other)
  Sender: FDA-Public Use
  Company Number: US-LUNDBECK-DKLU2019356

PATIENT
  Sex: Female

DRUGS (2)
  1. SABRIL [Suspect]
     Active Substance: VIGABATRIN
     Indication: SEIZURE
     Route: 065
  2. SABRIL [Suspect]
     Active Substance: VIGABATRIN
     Route: 065

REACTIONS (2)
  - Incorrect product storage [Unknown]
  - Seizure [Unknown]
